FAERS Safety Report 25985443 (Version 1)
Quarter: 2025Q4

REPORT INFORMATION
  Report Type: Spontaneous
  Country: EU (occurrence: EU)
  Receive Date: 20251031
  Receipt Date: 20251031
  Transmission Date: 20260117
  Serious: Yes (Other)
  Sender: NOVARTIS
  Company Number: EU-002147023-NVSC2025DE165571

PATIENT
  Sex: Female

DRUGS (1)
  1. REMIBRUTINIB [Suspect]
     Active Substance: REMIBRUTINIB
     Indication: Chronic spontaneous urticaria
     Dosage: UNK
     Route: 065

REACTIONS (4)
  - Neurodegenerative disorder [Recovering/Resolving]
  - Phagocytosis [Recovering/Resolving]
  - Amnesia [Recovering/Resolving]
  - Petechiae [Recovering/Resolving]
